FAERS Safety Report 16741640 (Version 1)
Quarter: 2019Q3

REPORT INFORMATION
  Report Type: Spontaneous
  Country: PK (occurrence: PK)
  Receive Date: 20190826
  Receipt Date: 20190826
  Transmission Date: 20191005
  Serious: Yes (Hospitalization, Other)
  Sender: FDA-Public Use
  Company Number: PK-ALLERGAN-1934876US

PATIENT
  Sex: Female

DRUGS (2)
  1. VILAZODONE HCL UNK [Suspect]
     Active Substance: VILAZODONE HYDROCHLORIDE
     Indication: DEPRESSION
     Dosage: UNK
     Route: 065
  2. VILAZODONE HCL UNK [Suspect]
     Active Substance: VILAZODONE HYDROCHLORIDE
     Indication: ANXIETY

REACTIONS (7)
  - Hyperammonaemic crisis [Unknown]
  - Ataxia [Recovering/Resolving]
  - Agitation [Unknown]
  - Vomiting [Unknown]
  - Neuropsychiatric symptoms [Recovering/Resolving]
  - Off label use [Unknown]
  - Lethargy [Unknown]
